FAERS Safety Report 6494488-2 (Version None)
Quarter: 2009Q4

REPORT INFORMATION
  Report Type: 
  Country: None (occurrence: None)
  Receive Date: 20091214
  Receipt Date: 20090223
  Transmission Date: 20100525
  Serious: No
  Sender: FDA-Public Use
  Company Number: US-BRISTOL-MYERS SQUIBB COMPANY-14518856

PATIENT
  Age: 2 Decade
  Sex: Male

DRUGS (3)
  1. ABILIFY [Suspect]
     Indication: PSYCHOTIC DISORDER
     Dosage: DECREASED DOSAGE TO 10MG
  2. ABILIFY [Suspect]
     Indication: MENTAL RETARDATION
     Dosage: DECREASED DOSAGE TO 10MG
  3. ABILIFY [Suspect]
     Indication: DEVELOPMENTAL DELAY
     Dosage: DECREASED DOSAGE TO 10MG

REACTIONS (1)
  - BLOOD GLUCOSE INCREASED [None]
